FAERS Safety Report 4289529-7 (Version None)
Quarter: 2004Q1

REPORT INFORMATION
  Report Type: 
  Country: None (occurrence: None)
  Receive Date: 20040203
  Receipt Date: 20021209
  Transmission Date: 20041129
  Serious: Yes (Hospitalization)
  Sender: FDA-Public Use
  Company Number: 200310198BWH

PATIENT
  Age: 86 Year
  Sex: Female
  Weight: 60.3284 kg

DRUGS (11)
  1. AVELOX [Suspect]
     Indication: ASTHMA
     Dosage: 400 MG, TOTAL DAILY, ORAL
     Route: 048
     Dates: start: 20021118
  2. AVELOX [Suspect]
     Indication: BRONCHITIS
     Dosage: 400 MG, TOTAL DAILY, ORAL
     Route: 048
     Dates: start: 20021118
  3. UNIPHYL [Concomitant]
  4. LIPITOR [Concomitant]
  5. ACCUPRIL [Concomitant]
  6. METOPROLOL [Concomitant]
  7. PLAVIX [Concomitant]
  8. PREVACID [Concomitant]
  9. FOSAMAX [Concomitant]
  10. CALCIUM WITH VITAMIN D [Concomitant]
  11. DARVOCET-N 100 [Concomitant]

REACTIONS (3)
  - CYANOSIS [None]
  - EYE ROLLING [None]
  - LOSS OF CONSCIOUSNESS [None]
